FAERS Safety Report 5513046-7 (Version None)
Quarter: 2007Q4

REPORT INFORMATION
  Report Type: 
  Country: None (occurrence: None)
  Receive Date: 20071112
  Receipt Date: 20070910
  Transmission Date: 20080405
  Serious: No
  Sender: FDA-Public Use
  Company Number: US-ABBOTT-07P-163-0416728-00

PATIENT
  Sex: Female
  Weight: 70.37 kg

DRUGS (8)
  1. TRICOR [Suspect]
     Indication: BLOOD CHOLESTEROL INCREASED
     Route: 048
     Dates: start: 20070720
  2. ATENOLOL [Concomitant]
     Indication: TACHYCARDIA
     Route: 048
  3. BUPROPION HYDROCHLORIDE [Concomitant]
     Indication: DEPRESSION
     Route: 048
  4. LANSOPRAZOLE [Concomitant]
     Indication: GASTRIC DISORDER
     Route: 048
  5. MONTELUKAST SODIUM [Concomitant]
     Indication: HYPERSENSITIVITY
     Route: 048
  6. BUDESONIDE [Concomitant]
     Indication: HYPERSENSITIVITY
     Route: 045
  7. CIRRUS [Concomitant]
     Indication: HYPERSENSITIVITY
     Route: 048
  8. CHLORDIAZEPOXIDE W/CLIDINIUM [Concomitant]
     Indication: GASTRIC DISORDER
     Route: 048

REACTIONS (2)
  - HOT FLUSH [None]
  - MYALGIA [None]
